FAERS Safety Report 9809777 (Version 2)
Quarter: 2014Q1

REPORT INFORMATION
  Report Type: Spontaneous
  Country: US (occurrence: US)
  Receive Date: 20140110
  Receipt Date: 20140110
  Transmission Date: 20141002
  Serious: Yes (Hospitalization)
  Sender: FDA-Public Use
  Company Number: US-SANOFI-AVENTIS-2012SA077389

PATIENT
  Age: 50 Year
  Sex: Male

DRUGS (19)
  1. PLAVIX [Suspect]
     Indication: ACUTE CORONARY SYNDROME
     Route: 048
     Dates: start: 20120710
  2. PLAVIX [Suspect]
     Indication: ACUTE CORONARY SYNDROME
     Route: 048
     Dates: start: 20120710, end: 20120710
  3. PLAVIX [Suspect]
     Indication: ACUTE CORONARY SYNDROME
     Route: 048
     Dates: start: 20120713, end: 20120713
  4. ASPIRIN [Suspect]
     Indication: ACUTE CORONARY SYNDROME
     Route: 048
     Dates: start: 20120710
  5. HEPARIN SODIUM [Suspect]
     Indication: ACUTE CORONARY SYNDROME
     Route: 042
     Dates: start: 20120710, end: 20120710
  6. EPTIFIBATIDE [Suspect]
     Indication: ACUTE CORONARY SYNDROME
     Dates: start: 20120710, end: 20120711
  7. HEPARIN [Concomitant]
     Route: 060
     Dates: start: 20120710, end: 20120710
  8. HEPARIN [Concomitant]
     Route: 041
     Dates: start: 20120710, end: 20120710
  9. ATORVASTATIN [Concomitant]
     Dates: start: 20120711, end: 20120711
  10. PEPCID [Concomitant]
     Dates: start: 20120711, end: 20120717
  11. FENTANYL CITRATE [Concomitant]
     Dates: start: 20120710, end: 20120713
  12. LIDOCAINE [Concomitant]
     Dates: start: 20120710, end: 20120713
  13. LISINOPRIL [Concomitant]
     Dates: start: 20120711, end: 20120711
  14. METOPROLOL [Concomitant]
     Dates: start: 20120711, end: 20120713
  15. VERSED [Concomitant]
     Dates: start: 20120710, end: 20120713
  16. MORPHINE SULFATE [Concomitant]
     Dates: start: 20120711, end: 20120712
  17. GLYCERYL TRINITRATE [Concomitant]
     Dates: start: 20120711, end: 20120711
  18. CARDIZEM [Concomitant]
     Dates: start: 20120710, end: 20120710
  19. NOVOLOG [Concomitant]
     Dates: start: 20120711, end: 20120711

REACTIONS (1)
  - Pericardial haemorrhage [Recovered/Resolved]
